FAERS Safety Report 11746224 (Version 1)
Quarter: 2015Q4

REPORT INFORMATION
  Report Type: Spontaneous
  Country: US (occurrence: None)
  Receive Date: 20151116
  Receipt Date: 20151116
  Transmission Date: 20160304
  Serious: No
  Sender: FDA-Public Use
  Company Number: None

PATIENT
  Age: 56 Year
  Sex: Male
  Weight: 68.95 kg

DRUGS (11)
  1. IBUPROFEN. [Concomitant]
     Active Substance: IBUPROFEN
  2. PHENYLEPHRINE HYDROCHLORIDE SPRAY [Concomitant]
  3. CENTRUM MULTIVITAMINS [Concomitant]
     Active Substance: VITAMINS
  4. NODOZ [Suspect]
     Active Substance: CAFFEINE
     Indication: DISTURBANCE IN ATTENTION
     Dosage: APPROX. 3 WEEKS
     Route: 048
  5. SHOPRITE BRAND IRON TABLETS [Concomitant]
  6. TYLENOL [Concomitant]
     Active Substance: ACETAMINOPHEN
  7. BENADRYL [Concomitant]
     Active Substance: DIPHENHYDRAMINE HYDROCHLORIDE
  8. TOLNAFTATE CREAM 1% [Concomitant]
     Active Substance: TOLNAFTATE
  9. HYDROCORTISONE CREAM 1% PLUS 12 MOISTURIZERS [Concomitant]
     Active Substance: HYDROCORTISONE
  10. NODOZ [Suspect]
     Active Substance: CAFFEINE
     Indication: MAJOR DEPRESSION
     Dosage: APPROX. 3 WEEKS
     Route: 048
  11. ASPIRIN. [Concomitant]
     Active Substance: ASPIRIN

REACTIONS (4)
  - Product contamination [None]
  - Malaise [None]
  - Major depression [None]
  - Irritability [None]

NARRATIVE: CASE EVENT DATE: 20151115
